FAERS Safety Report 25552106 (Version 2)
Quarter: 2025Q3

REPORT INFORMATION
  Report Type: Spontaneous
  Country: JP (occurrence: JP)
  Receive Date: 20250715
  Receipt Date: 20250730
  Transmission Date: 20251020
  Serious: Yes (Other)
  Sender: GLAXOSMITHKLINE
  Company Number: JP-GSKJP-JP2025JPN085138AA

PATIENT
  Age: 72 Year
  Sex: Female

DRUGS (1)
  1. VALTREX [Suspect]
     Active Substance: VALACYCLOVIR HYDROCHLORIDE
     Indication: Herpes zoster
     Dosage: 3000 MG, QD

REACTIONS (10)
  - Altered state of consciousness [Unknown]
  - Acute kidney injury [Unknown]
  - Toxic encephalopathy [Unknown]
  - Renal impairment [Unknown]
  - Dyslalia [Unknown]
  - Oliguria [Unknown]
  - Disorientation [Unknown]
  - Cardiomegaly [Unknown]
  - Pleural effusion [Unknown]
  - Kidney enlargement [Unknown]
